FAERS Safety Report 14813550 (Version 1)
Quarter: 2018Q2

REPORT INFORMATION
  Report Type: Spontaneous
  Country: FR (occurrence: FR)
  Receive Date: 20180426
  Receipt Date: 20180426
  Transmission Date: 20180711
  Serious: Yes (Hospitalization)
  Sender: FDA-Public Use
  Company Number: FR-BRISTOL-MYERS SQUIBB COMPANY-BMS-2018-036074

PATIENT
  Age: 95 Year
  Sex: Female
  Weight: 64.8 kg

DRUGS (2)
  1. ESCITALOPRAM ARROW [Interacting]
     Active Substance: ESCITALOPRAM OXALATE
     Indication: ANXIETY
     Dosage: 10 MG/DAY
     Route: 048
     Dates: start: 20180214, end: 20180308
  2. ELIQUIS [Suspect]
     Active Substance: APIXABAN
     Indication: PULMONARY EMBOLISM
     Dosage: 10 MG/DAY
     Route: 048
     Dates: start: 20180214, end: 20180228

REACTIONS (2)
  - Drug interaction [Recovering/Resolving]
  - Haematoma [Recovering/Resolving]

NARRATIVE: CASE EVENT DATE: 20180228
